FAERS Safety Report 9263467 (Version 1)
Quarter: 2013Q2

REPORT INFORMATION
  Report Type: Spontaneous
  Country: US (occurrence: US)
  Receive Date: 20130430
  Receipt Date: 20130430
  Transmission Date: 20140414
  Serious: No
  Sender: FDA-Public Use
  Company Number: US-ABBOTT-13P-163-1065050-00

PATIENT
  Sex: Female
  Weight: 71.73 kg

DRUGS (5)
  1. CREON [Suspect]
     Indication: PANCREATITIS
     Dosage: 2 CAPSULES PER MEAL
     Dates: start: 2009, end: 20130318
  2. METFORMIN [Concomitant]
     Indication: DIABETES MELLITUS
  3. GLIMEPIRIDE [Concomitant]
     Indication: DIABETES MELLITUS
  4. LISINOPRIL [Concomitant]
     Indication: HYPERTENSION
  5. VITAMIN D [Concomitant]
     Indication: BONE DISORDER

REACTIONS (4)
  - Dyspepsia [Unknown]
  - Oropharyngeal pain [Unknown]
  - Cough [Unknown]
  - Diarrhoea [Unknown]
